FAERS Safety Report 17497985 (Version 2)
Quarter: 2020Q1

REPORT INFORMATION
  Report Type: Report from Study
  Country: HU (occurrence: HU)
  Receive Date: 20200304
  Receipt Date: 20200320
  Transmission Date: 20200409
  Serious: Yes (Hospitalization, Other)
  Sender: FDA-Public Use
  Company Number: NVSC2020HU062668

PATIENT
  Age: 71 Year
  Sex: Male
  Weight: 72 kg

DRUGS (4)
  1. TEGRETOL [Suspect]
     Active Substance: CARBAMAZEPINE
     Indication: EPILEPSY
  2. COVEREX (PERINDOPRIL ERBUMINE) [Concomitant]
     Indication: HYPERTENSION
     Dosage: 5 MG
     Route: 065
     Dates: start: 20110824
  3. TEGRETOL [Suspect]
     Active Substance: CARBAMAZEPINE
     Indication: POST STROKE EPILEPSY
     Dosage: 200 MG, BID
     Route: 048
     Dates: start: 20110824
  4. TALLITON [Concomitant]
     Active Substance: CARVEDILOL
     Indication: HYPERTENSION
     Dosage: 12.5 MG, BID
     Route: 065
     Dates: start: 20110824

REACTIONS (13)
  - Cerebrovascular accident [Unknown]
  - Portal vein thrombosis [Unknown]
  - Polycythaemia vera [Unknown]
  - Thrombosis [Unknown]
  - Portal vein thrombosis [Recovered/Resolved]
  - Subclavian vein thrombosis [Unknown]
  - Fall [Unknown]
  - Abdominal pain upper [Recovered/Resolved]
  - Haematoma [Unknown]
  - Hepatic vein thrombosis [Recovered/Resolved]
  - Seizure [Recovered/Resolved]
  - Limb injury [Unknown]
  - Budd-Chiari syndrome [Unknown]

NARRATIVE: CASE EVENT DATE: 2011
